FAERS Safety Report 9918117 (Version 2)
Quarter: 2014Q1

REPORT INFORMATION
  Report Type: Spontaneous
  Country: ES (occurrence: ES)
  Receive Date: 20140223
  Receipt Date: 20140223
  Transmission Date: 20141002
  Serious: No
  Sender: FDA-Public Use
  Company Number: ES-ALLERGAN-1311220US

PATIENT
  Age: 29 Year
  Sex: Female

DRUGS (2)
  1. ZORAC 0,1% [Suspect]
     Indication: PSORIASIS
     Dosage: UNK
     Route: 061
     Dates: start: 201304, end: 201307
  2. CYCLOSPORINE [Concomitant]
     Indication: CHRONIC HEPATITIS B

REACTIONS (1)
  - Unintended pregnancy [Unknown]
